FAERS Safety Report 11765098 (Version 1)
Quarter: 2015Q4

REPORT INFORMATION
  Report Type: Spontaneous
  Country: US (occurrence: US)
  Receive Date: 20151121
  Receipt Date: 20151121
  Transmission Date: 20160304
  Serious: Yes (Hospitalization)
  Sender: FDA-Public Use
  Company Number: US-AUROBINDO-AUR-APL-2015-10470

PATIENT
  Age: 65 Year
  Sex: Female

DRUGS (1)
  1. TRIMETHOPRIM+SULFAMETHOXAZOLE [Suspect]
     Active Substance: SULFAMETHOXAZOLE\TRIMETHOPRIM
     Indication: URINARY TRACT INFECTION
     Route: 065

REACTIONS (19)
  - Productive cough [Unknown]
  - Monocytosis [Unknown]
  - Myalgia [Unknown]
  - Contusion [Unknown]
  - Pancytopenia [Recovered/Resolved]
  - Thrombocytopenia [Unknown]
  - Asthenia [Unknown]
  - Human ehrlichiosis [Unknown]
  - Rocky mountain spotted fever [Unknown]
  - Iron binding capacity total decreased [Unknown]
  - Neutropenia [Unknown]
  - Fatigue [Unknown]
  - Human anaplasmosis [Unknown]
  - Petechiae [Unknown]
  - Haemoglobin decreased [Unknown]
  - Serum ferritin increased [Unknown]
  - Pyrexia [Unknown]
  - Arthropod bite [Unknown]
  - Leukopenia [Unknown]
